FAERS Safety Report 7297544-4 (Version None)
Quarter: 2011Q1

REPORT INFORMATION
  Report Type: 
  Country: None (occurrence: None)
  Receive Date: 20110216
  Receipt Date: 20110209
  Transmission Date: 20110831
  Serious: Yes (Other)
  Sender: FDA-Public Use
  Company Number: GB-PFIZER INC-2010152918

PATIENT
  Age: 24 Year
  Sex: Female
  Weight: 59 kg

DRUGS (2)
  1. CARBIMAZOLE [Concomitant]
     Indication: HYPERTHYROIDISM
     Dosage: 20 MG, 1X/DAY
  2. DEPO-PROVERA [Suspect]
     Indication: CONTRACEPTION
     Dosage: 150 MG, EVERY 3 MONTHS
     Route: 030
     Dates: start: 20070205

REACTIONS (7)
  - MALAISE [None]
  - HYPOAESTHESIA [None]
  - INJECTION SITE PAIN [None]
  - DIZZINESS [None]
  - TREMOR [None]
  - ABASIA [None]
  - PAIN IN EXTREMITY [None]
